FAERS Safety Report 5692814-5 (Version None)
Quarter: 2008Q2

REPORT INFORMATION
  Report Type: 
  Country: None (occurrence: None)
  Receive Date: 20080401
  Receipt Date: 20080315
  Transmission Date: 20081010
  Serious: Yes (Other)
  Sender: FDA-Public Use
  Company Number: ADE2008-0158

PATIENT
  Age: 38 Year
  Sex: Male

DRUGS (9)
  1. ATENOLOL [Suspect]
     Indication: HYPERTENSION
  2. CYCLOSPORINE [Suspect]
  3. MYCOPHENOLATE MOFETIL [Suspect]
     Indication: RENAL TRANSPLANT
     Dosage: 500MG 2 TABS - QD - PO
     Route: 048
     Dates: start: 20020615, end: 20060315
  4. ASPIRIN [Suspect]
  5. DOXAZOSIN [Suspect]
  6. ISONIAZID [Suspect]
  7. LAMIVUDINE [Suspect]
     Indication: HEPATITIS B
  8. PERINDOPRIL [Suspect]
     Indication: HYPERTENSION
  9. PYRIDOXINE [Suspect]

REACTIONS (1)
  - SPERMATOZOA PROGRESSIVE MOTILITY ABNORMAL [None]
